FAERS Safety Report 6626500-1 (Version None)
Quarter: 2010Q1

REPORT INFORMATION
  Report Type: 
  Country: None (occurrence: None)
  Receive Date: 20100309
  Receipt Date: 20100309
  Transmission Date: 20100710
  Serious: Yes (Other)
  Sender: FDA-Public Use
  Company Number: None

PATIENT
  Age: 52 Year
  Sex: Female
  Weight: 92.9874 kg

DRUGS (1)
  1. AZITHROMYCIN [Suspect]
     Indication: SKIN INFECTION
     Dosage: 250 MG 1 DAY
     Dates: start: 20100216, end: 20100221

REACTIONS (4)
  - LYMPHADENOPATHY [None]
  - RASH PRURITIC [None]
  - SCAR [None]
  - THROAT TIGHTNESS [None]
